FAERS Safety Report 24169855 (Version 4)
Quarter: 2025Q2

REPORT INFORMATION
  Report Type: Report from Study
  Country: US (occurrence: US)
  Receive Date: 20240803
  Receipt Date: 20250618
  Transmission Date: 20250716
  Serious: Yes (Hospitalization)
  Sender: BAXTER
  Company Number: US-BAXTER-2024BAX022247

PATIENT
  Age: 67 Year
  Sex: Male
  Weight: 77.655 kg

DRUGS (14)
  1. CYCLOPHOSPHAMIDE [Suspect]
     Active Substance: CYCLOPHOSPHAMIDE
     Indication: Diffuse large B-cell lymphoma stage IV
     Dosage: 1500 MG, EVERY 3 WK
     Route: 042
     Dates: start: 20240509, end: 20240530
  2. DOXORUBICIN [Suspect]
     Active Substance: DOXORUBICIN
     Indication: Diffuse large B-cell lymphoma stage IV
     Dosage: 100 MG, EVERY 3 WK
     Route: 042
     Dates: start: 20240509, end: 20240530
  3. EPCORITAMAB [Suspect]
     Active Substance: EPCORITAMAB
     Indication: Diffuse large B-cell lymphoma stage IV
     Route: 065
  4. VINCRISTINE [Suspect]
     Active Substance: VINCRISTINE
     Indication: Diffuse large B-cell lymphoma stage IV
     Dosage: 2 MG, EVERY 3 WK
     Route: 042
     Dates: start: 20240509, end: 20240530
  5. RITUXIMAB [Suspect]
     Active Substance: RITUXIMAB
     Indication: Diffuse large B-cell lymphoma stage IV
     Dosage: 770 MG, EVERY 3 WK
     Route: 042
     Dates: start: 20240509, end: 20240530
  6. PREDNISONE [Suspect]
     Active Substance: PREDNISONE
     Indication: Diffuse large B-cell lymphoma stage IV
     Route: 048
     Dates: start: 20240509, end: 20240603
  7. ATORVASTATIN [Concomitant]
     Active Substance: ATORVASTATIN
     Indication: Coronary artery disease
     Dosage: 10 MG, QD
     Route: 065
     Dates: start: 20240122
  8. ASPIRIN [Concomitant]
     Active Substance: ASPIRIN
     Indication: Coronary artery disease
     Dosage: 81 MG, QD
     Route: 065
     Dates: start: 20240502
  9. BACTRIM DS [Concomitant]
     Active Substance: SULFAMETHOXAZOLE\TRIMETHOPRIM
     Indication: Infection prophylaxis
     Route: 065
     Dates: start: 20240509
  10. METOPROLOL SUCCINATE [Concomitant]
     Active Substance: METOPROLOL SUCCINATE
     Indication: Hypertension
     Dosage: 25 MG, QD
     Route: 065
     Dates: start: 20240122
  11. PANTOPRAZOLE [Concomitant]
     Active Substance: PANTOPRAZOLE
     Indication: Gastric ulcer
     Dosage: 40 MG, QD
     Route: 065
     Dates: start: 202404
  12. ACYCLOVIR [Concomitant]
     Active Substance: ACYCLOVIR
     Indication: Antiviral prophylaxis
     Route: 065
     Dates: start: 20240509
  13. VORICONAZOLE [Concomitant]
     Active Substance: VORICONAZOLE
     Indication: Infection prophylaxis
     Route: 065
     Dates: start: 20240509
  14. FERROUS SULFATE [Concomitant]
     Active Substance: FERROUS SULFATE
     Indication: Iron deficiency anaemia
     Dosage: 325 MG, EVERY 2 DY
     Route: 065
     Dates: start: 20231104

REACTIONS (2)
  - Anaemia [Not Recovered/Not Resolved]
  - Anaemia [Recovered/Resolved]

NARRATIVE: CASE EVENT DATE: 20240523
